FAERS Safety Report 24885511 (Version 2)
Quarter: 2025Q1

REPORT INFORMATION
  Report Type: Report from Study
  Country: US (occurrence: US)
  Receive Date: 20250124
  Receipt Date: 20250203
  Transmission Date: 20250409
  Serious: Yes (Other)
  Sender: ABBVIE
  Company Number: US-ABBVIE-6092543

PATIENT
  Sex: Male

DRUGS (1)
  1. RESTASIS [Suspect]
     Active Substance: CYCLOSPORINE
     Indication: Product used for unknown indication
     Route: 047

REACTIONS (6)
  - Knee operation [Unknown]
  - Thrombosis [Unknown]
  - Limb injury [Unknown]
  - Road traffic accident [Unknown]
  - Joint injury [Unknown]
  - Shoulder operation [Unknown]
